FAERS Safety Report 19971934 (Version 1)
Quarter: 2021Q4

REPORT INFORMATION
  Report Type: Spontaneous
  Country: IT (occurrence: IT)
  Receive Date: 20211019
  Receipt Date: 20211019
  Transmission Date: 20220304
  Serious: Yes (Death)
  Sender: FDA-Public Use
  Company Number: IT-ALLERGAN-2135178US

PATIENT
  Sex: Male

DRUGS (14)
  1. MORPHINE SULFATE [Interacting]
     Active Substance: MORPHINE SULFATE
     Indication: Product used for unknown indication
  2. TIZANIDINE [Interacting]
     Active Substance: TIZANIDINE
     Indication: Pneumonia bacterial
     Dosage: 2 MG, QD
  3. ZOLPIDEM [Interacting]
     Active Substance: ZOLPIDEM TARTRATE
     Indication: Product used for unknown indication
  4. CIPROFLOXACIN [Suspect]
     Active Substance: CIPROFLOXACIN
     Indication: Pneumonia bacterial
     Dosage: 500 MG, BID
  5. OXAZEPAM [Interacting]
     Active Substance: OXAZEPAM
     Indication: Product used for unknown indication
  6. CLINDAMYCIN [Concomitant]
     Active Substance: CLINDAMYCIN
  7. PREDNISONE [Concomitant]
     Active Substance: PREDNISONE
  8. THIAMINE [Concomitant]
     Active Substance: THIAMINE
  9. LEVOTHYROXINE [Concomitant]
     Active Substance: LEVOTHYROXINE
  10. GABAPENTIN [Concomitant]
     Active Substance: GABAPENTIN
  11. PICOSULFATE DE SODIUM [Concomitant]
  12. ACETYLCYSTEINE [Concomitant]
     Active Substance: ACETYLCYSTEINE
  13. ESOMEPRAZOLE. [Concomitant]
     Active Substance: ESOMEPRAZOLE MAGNESIUM
  14. VITAMIN B [Concomitant]
     Active Substance: VITAMIN B

REACTIONS (1)
  - Respiratory distress [Fatal]
